FAERS Safety Report 6117913-5 (Version None)
Quarter: 2009Q1

REPORT INFORMATION
  Report Type: 
  Country: None (occurrence: None)
  Receive Date: 20090314
  Receipt Date: 20090202
  Transmission Date: 20090719
  Serious: No
  Sender: FDA-Public Use
  Company Number: US-ABBOTT-09P-163-0501322-00

PATIENT
  Sex: Male

DRUGS (1)
  1. HUMIRA [Suspect]
     Indication: PSORIATIC ARTHROPATHY
     Route: 058
     Dates: start: 20081027

REACTIONS (6)
  - EYE SWELLING [None]
  - GENERALISED OEDEMA [None]
  - JOINT SWELLING [None]
  - LOCAL SWELLING [None]
  - PYREXIA [None]
  - SWELLING FACE [None]
